FAERS Safety Report 7002119-8 (Version None)
Quarter: 2010Q3

REPORT INFORMATION
  Report Type: 
  Country: None (occurrence: None)
  Receive Date: 20100920
  Receipt Date: 20070508
  Transmission Date: 20110219
  Serious: Yes (Other)
  Sender: FDA-Public Use
  Company Number: US-ASTRAZENECA-2006UW07926

PATIENT
  Age: 515 Month
  Sex: Male
  Weight: 102.1 kg

DRUGS (11)
  1. SEROQUEL [Suspect]
     Indication: MOOD SWINGS
     Route: 048
     Dates: start: 20040101
  2. SEROQUEL [Suspect]
     Indication: SLEEP DISORDER
     Route: 048
     Dates: start: 20040101
  3. SEROQUEL [Suspect]
     Route: 048
     Dates: start: 20051026
  4. SEROQUEL [Suspect]
     Route: 048
     Dates: start: 20051026
  5. GEODON [Concomitant]
     Dosage: 20-80 MG
     Route: 048
     Dates: start: 20051117
  6. WELLBUTRIN [Concomitant]
     Dosage: 100-200 MG
     Route: 048
     Dates: start: 20050210
  7. AMBIEN [Concomitant]
     Dosage: 5-10 MG
     Route: 048
     Dates: start: 20050213
  8. VISTARIL [Concomitant]
     Indication: ANXIETY
     Dosage: 25-150 MG
     Route: 048
     Dates: start: 20060103
  9. PROZAC [Concomitant]
     Dosage: 10-20 MG
     Route: 048
     Dates: start: 20050818
  10. ATIVAN [Concomitant]
     Route: 048
     Dates: start: 20051117
  11. IBUPROFEN [Concomitant]
     Dates: start: 20050210

REACTIONS (3)
  - DIABETES MELLITUS [None]
  - IMPAIRED FASTING GLUCOSE [None]
  - PANCREATITIS [None]
